FAERS Safety Report 8826969 (Version 2)
Quarter: 2012Q4

REPORT INFORMATION
  Report Type: 
  Country: IT (occurrence: IT)
  Receive Date: 20121008
  Receipt Date: 20121022
  Transmission Date: 20130627
  Serious: Yes (Hospitalization)
  Sender: FDA-Public Use
  Company Number: IT-BIOGENIDEC-2012BI042059

PATIENT
  Age: 47 Year
  Sex: Male

DRUGS (1)
  1. TYSABRI [Suspect]
     Indication: RELAPSING-REMITTING MULTIPLE SCLEROSIS
     Route: 042
     Dates: start: 201112, end: 20120221

REACTIONS (4)
  - Pneumonia viral [Recovered/Resolved]
  - Diabetes mellitus [Unknown]
  - Lower motor neurone lesion [Not Recovered/Not Resolved]
  - Venous thrombosis [Unknown]
